FAERS Safety Report 9288872 (Version 1)
Quarter: 2013Q2

REPORT INFORMATION
  Report Type: Report from Study
  Country: US (occurrence: US)
  Receive Date: 20130514
  Receipt Date: 20130514
  Transmission Date: 20140414
  Serious: Yes (Hospitalization, Other)
  Sender: FDA-Public Use
  Company Number: US-ABBOTT-13P-163-1086107-00

PATIENT
  Age: 36 Year
  Sex: Female

DRUGS (5)
  1. SYNTHROID 25 MCG [Suspect]
     Indication: BASEDOW^S DISEASE
     Dates: start: 20111015
  2. SYNTHROID 50 MCG [Suspect]
     Indication: BASEDOW^S DISEASE
  3. SYNTHROID 75 MCG [Suspect]
     Indication: BASEDOW^S DISEASE
  4. TIROSINT [Suspect]
     Indication: THYROIDECTOMY
     Dates: start: 201112
  5. TIROSINT [Suspect]
     Dates: start: 201112

REACTIONS (11)
  - Blood pressure immeasurable [Unknown]
  - Asthenia [Unknown]
  - Blood glucose fluctuation [Unknown]
  - Vertigo [Unknown]
  - Dizziness [Unknown]
  - Blood thyroid stimulating hormone increased [Unknown]
  - Thyroidectomy [Unknown]
  - Lupus-like syndrome [Unknown]
  - Chills [Unknown]
  - Arthralgia [Unknown]
  - Burning sensation [Unknown]
